FAERS Safety Report 6999148-7 (Version None)
Quarter: 2010Q3

REPORT INFORMATION
  Report Type: 
  Country: None (occurrence: None)
  Receive Date: 20100920
  Receipt Date: 20100226
  Transmission Date: 20110219
  Serious: No
  Sender: FDA-Public Use
  Company Number: US-ASTRAZENECA-2010SE08658

PATIENT
  Sex: Male

DRUGS (9)
  1. SEROQUEL [Suspect]
     Route: 048
  2. DEPAKOTE [Concomitant]
  3. LITHIUM CARBONATE [Concomitant]
  4. RISPERIDONE [Concomitant]
  5. AMITRIPTYLINE HCL [Concomitant]
  6. TRAZODONE HCL [Concomitant]
  7. GEODON [Concomitant]
  8. OLANZAPINE [Concomitant]
  9. STELAZINE [Concomitant]

REACTIONS (2)
  - GENERAL SYMPTOM [None]
  - MENTAL DISORDER [None]
